FAERS Safety Report 6162263-4 (Version None)
Quarter: 2009Q2

REPORT INFORMATION
  Report Type: 
  Country: None (occurrence: None)
  Receive Date: 20090417
  Receipt Date: 20090417
  Transmission Date: 20091009
  Serious: Yes (Other)
  Sender: FDA-Public Use
  Company Number: None

PATIENT
  Sex: Female

DRUGS (1)
  1. IRON SUCROSE [Suspect]
     Dosage: 500 MG IV
     Route: 042
     Dates: start: 20090327, end: 20090327

REACTIONS (4)
  - FATIGUE [None]
  - INFUSION RELATED REACTION [None]
  - PAIN IN EXTREMITY [None]
  - PARAESTHESIA [None]
